FAERS Safety Report 9659857 (Version 1)
Quarter: 2013Q4

REPORT INFORMATION
  Report Type: Spontaneous
  Country: US (occurrence: US)
  Receive Date: 20131031
  Receipt Date: 20131031
  Transmission Date: 20140711
  Serious: Yes (Other)
  Sender: FDA-Public Use
  Company Number: US-SUN PHARMACEUTICAL INDUSTRIES LTD-2013SUN04919

PATIENT
  Age: 54 Year
  Sex: Male

DRUGS (2)
  1. LITHIUM CARBONATE TABLETS, USP 300MG [Suspect]
     Indication: PRODUCT USED FOR UNKNOWN INDICATION
     Dosage: UNK
     Route: 065
  2. IOHEXOL [OMNIPAQUE] [Suspect]
     Indication: TREMOR
     Route: 065

REACTIONS (1)
  - Thyrotoxic crisis [Recovering/Resolving]
